FAERS Safety Report 4319517-3 (Version None)
Quarter: 2004Q1

REPORT INFORMATION
  Report Type: 
  Country: None (occurrence: None)
  Receive Date: 20040315
  Receipt Date: 20040227
  Transmission Date: 20041129
  Serious: No
  Sender: FDA-Public Use
  Company Number: 2004US002036

PATIENT
  Age: 58 Year
  Sex: Male
  Weight: 98.4 kg

DRUGS (3)
  1. ALOXI [Suspect]
     Indication: PROPHYLAXIS OF NAUSEA AND VOMITING
     Dosage: 0.25 MG, SINGLE, INTRAVENOUS
     Route: 042
     Dates: start: 20040209, end: 20040209
  2. HEXADROL (DEXAMETHASONE) [Concomitant]
  3. NORMAL SALINE (SODUIM CHLORIDE) [Concomitant]

REACTIONS (3)
  - DYSSTASIA [None]
  - HYPERSENSITIVITY [None]
  - INFUSION RELATED REACTION [None]
